FAERS Safety Report 25702016 (Version 1)
Quarter: 2025Q3

REPORT INFORMATION
  Report Type: Spontaneous
  Country: US (occurrence: US)
  Receive Date: 20250819
  Receipt Date: 20250819
  Transmission Date: 20251020
  Serious: No
  Sender: IMPEL NEUROPHARMA
  Company Number: US-IMPEL-2025-US-023388

PATIENT
  Age: 49 Year
  Sex: Female
  Weight: 61.24 kg

DRUGS (11)
  1. VENLAFAXINE [Concomitant]
     Active Substance: VENLAFAXINE HYDROCHLORIDE
  2. BIOTIN [Concomitant]
     Active Substance: BIOTIN
  3. VITAMIN D [Concomitant]
     Active Substance: VITAMIN D NOS
  4. ADDERALL [Concomitant]
     Active Substance: AMPHETAMINE ASPARTATE\AMPHETAMINE SULFATE\DEXTROAMPHETAMINE SACCHARATE\DEXTROAMPHETAMINE SULFATE
  5. MAGNESIUM [Concomitant]
     Active Substance: MAGNESIUM
  6. COENZYME Q10 [Concomitant]
     Active Substance: DIETARY SUPPLEMENT\UBIDECARENONE
  7. ALPRAZOLAM [Concomitant]
     Active Substance: ALPRAZOLAM
  8. AMITRIPTYLINE [Concomitant]
     Active Substance: AMITRIPTYLINE
  9. XYZAL [Concomitant]
     Active Substance: LEVOCETIRIZINE DIHYDROCHLORIDE
  10. BUPROPION [Concomitant]
     Active Substance: BUPROPION
  11. TRUDHESA [Suspect]
     Active Substance: DIHYDROERGOTAMINE MESYLATE
     Indication: Migraine
     Route: 045
     Dates: start: 20250509

REACTIONS (2)
  - Headache [Not Recovered/Not Resolved]
  - Wrong technique in product usage process [Recovered/Resolved]

NARRATIVE: CASE EVENT DATE: 20250509
